FAERS Safety Report 8600497-7 (Version None)
Quarter: 2012Q3

REPORT INFORMATION
  Report Type: 
  Country: None (occurrence: None)
  Receive Date: 20120808
  Receipt Date: 20120808
  Transmission Date: 20120928
  Serious: No
  Sender: FDA-Public Use
  Company Number: None

PATIENT
  Sex: Male
  Weight: 81.6475 kg

DRUGS (1)
  1. NEOMYCIN AND POLYMYXIN B SULFATE [Suspect]
     Indication: INFECTION PROPHYLAXIS
     Dosage: LAYER 1 IN. LONG 2X/DAY LOWER EYELID 2200 HRS. - 0700 HRS.
     Dates: start: 20120726

REACTIONS (5)
  - CORNEAL DISORDER [None]
  - EYE SWELLING [None]
  - ABSCESS OF EYELID [None]
  - BLOOD BLISTER [None]
  - VISION BLURRED [None]
